FAERS Safety Report 14992943 (Version 1)
Quarter: 2018Q2

REPORT INFORMATION
  Report Type: Other
  Country: AU (occurrence: AU)
  Receive Date: 20180610
  Receipt Date: 20180610
  Transmission Date: 20180711
  Serious: Yes (Other)
  Sender: FDA-Public Use
  Company Number: AU-DEXPHARM-20180379

PATIENT
  Sex: Female

DRUGS (2)
  1. CHLORHEXIDINE-ALCOHOL [Suspect]
     Active Substance: ALCOHOL\CHLORHEXIDINE GLUCONATE
  2. SILVAZINE [Concomitant]

REACTIONS (3)
  - Metabolic acidosis [Recovered/Resolved]
  - Chemical burn [Recovering/Resolving]
  - Dehydration [Recovered/Resolved]
